FAERS Safety Report 8249680-3 (Version None)
Quarter: 2012Q2

REPORT INFORMATION
  Report Type: 
  Country: None (occurrence: None)
  Receive Date: 20120402
  Receipt Date: 20120328
  Transmission Date: 20120825
  Serious: No
  Sender: FDA-Public Use
  Company Number: US-PFIZER INC-2012080242

PATIENT
  Sex: Female
  Weight: 78.46 kg

DRUGS (2)
  1. DILANTIN [Suspect]
     Indication: CONVULSION
     Dosage: 300MG (3 OF 100MG) ONCE A DAY
     Route: 048
     Dates: start: 20091001
  2. LEVOTHYROXINE [Concomitant]
     Dosage: UNK, ONCE A DAY

REACTIONS (3)
  - BALANCE DISORDER [None]
  - DRUG LEVEL DECREASED [None]
  - VISUAL IMPAIRMENT [None]
